FAERS Safety Report 8386971-X (Version None)
Quarter: 2012Q2

REPORT INFORMATION
  Report Type: 
  Country: None (occurrence: None)
  Receive Date: 20120522
  Receipt Date: 20120522
  Transmission Date: 20120825
  Serious: No
  Sender: FDA-Public Use
  Company Number: None

PATIENT
  Age: 58 Year
  Sex: Female
  Weight: 60.3284 kg

DRUGS (1)
  1. MORPHINE [Suspect]
     Indication: PAIN
     Dosage: 50 MG TWICE A DAY PO
     Route: 048
     Dates: start: 20120512, end: 20120519

REACTIONS (3)
  - ABDOMINAL DISCOMFORT [None]
  - CAPSULE PHYSICAL ISSUE [None]
  - WRONG TECHNIQUE IN DRUG USAGE PROCESS [None]
